FAERS Safety Report 6558237-1 (Version None)
Quarter: 2010Q1

REPORT INFORMATION
  Report Type: 
  Country: None (occurrence: None)
  Receive Date: 20100129
  Receipt Date: 20100126
  Transmission Date: 20100710
  Serious: Yes (Hospitalization, Other)
  Sender: FDA-Public Use
  Company Number: DE-BRISTOL-MYERS SQUIBB COMPANY-14939920

PATIENT
  Age: 47 Year
  Sex: Male
  Weight: 69 kg

DRUGS (1)
  1. KARVEA TABS 300 MG [Suspect]
     Indication: HYPERTENSION
     Route: 048
     Dates: start: 20091219, end: 20100119

REACTIONS (1)
  - LEUKOCYTOCLASTIC VASCULITIS [None]
